FAERS Safety Report 7762151-3 (Version None)
Quarter: 2011Q3

REPORT INFORMATION
  Report Type: 
  Country: None (occurrence: None)
  Receive Date: 20110920
  Receipt Date: 20110909
  Transmission Date: 20111222
  Serious: Yes (Other)
  Sender: FDA-Public Use
  Company Number: BE-JNJFOC-20110904783

PATIENT
  Age: 66 Year
  Sex: Female
  Weight: 85 kg

DRUGS (8)
  1. LORAZEPAM [Concomitant]
  2. EMCORETIC [Concomitant]
  3. DIOVAN [Concomitant]
  4. ACETAMINOPHEN [Concomitant]
  5. ZANTAC [Concomitant]
  6. TRAMADOL HCL [Concomitant]
  7. XARELTO [Suspect]
     Indication: HIP ARTHROPLASTY
     Route: 048
     Dates: start: 20110901, end: 20110907
  8. PULMICORT [Concomitant]

REACTIONS (1)
  - PULMONARY EMBOLISM [None]
